FAERS Safety Report 5170428-3 (Version None)
Quarter: 2006Q4

REPORT INFORMATION
  Report Type: 
  Country: None (occurrence: None)
  Receive Date: 20061212
  Receipt Date: 20060823
  Transmission Date: 20070319
  Serious: Yes (Disabling)
  Sender: FDA-Public Use
  Company Number: US-BOEHRINGER INGELHEIM PHARMACEUTICALS, INC.-2006-BP-09806BP

PATIENT
  Age: 78 Year
  Sex: Male

DRUGS (2)
  1. FLOMAX [Suspect]
     Indication: BENIGN PROSTATIC HYPERPLASIA
     Route: 048
     Dates: end: 20060722
  2. FLOMAX [Suspect]
     Indication: PROSTATIC DISORDER

REACTIONS (3)
  - BLINDNESS UNILATERAL [None]
  - IRIS HAEMORRHAGE [None]
  - VISUAL ACUITY REDUCED [None]
